FAERS Safety Report 24955462 (Version 1)
Quarter: 2025Q1

REPORT INFORMATION
  Report Type: Spontaneous
  Country: US (occurrence: None)
  Receive Date: 20250210
  Receipt Date: 20250210
  Transmission Date: 20250408
  Serious: Yes (Life-Threatening, Hospitalization, Disabling)
  Sender: FDA-CTU
  Company Number: None

PATIENT
  Age: 68 Year
  Sex: Male
  Weight: 95 kg

DRUGS (1)
  1. OZEMPIC [Suspect]
     Active Substance: SEMAGLUTIDE
     Indication: Diabetes mellitus
     Route: 058
     Dates: start: 20230501, end: 20241016

REACTIONS (9)
  - Intracranial hypotension [None]
  - Cerebral haemorrhage [None]
  - Cerebral infarction [None]
  - Subdural haematoma [None]
  - Hydrocephalus [None]
  - Brain herniation [None]
  - Brain stem infarction [None]
  - Product communication issue [None]
  - Product label issue [None]

NARRATIVE: CASE EVENT DATE: 20241016
